FAERS Safety Report 6162676-0 (Version None)
Quarter: 2009Q2

REPORT INFORMATION
  Report Type: 
  Country: None (occurrence: None)
  Receive Date: 20090421
  Receipt Date: 20090130
  Transmission Date: 20091009
  Serious: No
  Sender: FDA-Public Use
  Company Number: US-ASTRAZENECA-2009UW02828

PATIENT
  Age: 95 Year
  Sex: Male
  Weight: 84.8 kg

DRUGS (4)
  1. CASODEX [Suspect]
     Route: 048
     Dates: start: 20071201, end: 20081201
  2. FUROSEMIDE [Concomitant]
  3. LISINOPRIL [Concomitant]
  4. ALPRAZOLAM [Concomitant]

REACTIONS (3)
  - ERYTHEMA [None]
  - OEDEMA PERIPHERAL [None]
  - PRURITUS [None]
